FAERS Safety Report 19928359 (Version 1)
Quarter: 2021Q4

REPORT INFORMATION
  Report Type: Spontaneous
  Country: US (occurrence: US)
  Receive Date: 20211006
  Receipt Date: 20211006
  Transmission Date: 20220303
  Serious: Yes (Hospitalization)
  Sender: FDA-Public Use
  Company Number: None

PATIENT
  Sex: Female

DRUGS (1)
  1. PROLIA [Suspect]
     Active Substance: DENOSUMAB
     Indication: Osteoarthritis
     Dosage: OTHER FREQUENCY:Q 6 MONTHS;
     Route: 058
     Dates: start: 20201016

REACTIONS (3)
  - Blood pressure increased [None]
  - Fall [None]
  - Joint injury [None]
